FAERS Safety Report 5746476-9 (Version None)
Quarter: 2008Q2

REPORT INFORMATION
  Report Type: 
  Country: None (occurrence: None)
  Receive Date: 20080522
  Receipt Date: 20080520
  Transmission Date: 20081010
  Serious: Yes (Hospitalization)
  Sender: FDA-Public Use
  Company Number: B0521448A

PATIENT
  Age: 77 Year
  Sex: Male

DRUGS (3)
  1. CARVEDILOL [Suspect]
     Indication: HYPERTENSION
     Dosage: 25MG PER DAY
     Route: 048
     Dates: start: 20071221, end: 20071221
  2. DIOVAN [Concomitant]
     Dates: start: 20071221, end: 20071221
  3. HYDROCHLOROTHIAZIDE [Concomitant]
     Dates: start: 20071221, end: 20071221

REACTIONS (3)
  - COMA [None]
  - FAECAL INCONTINENCE [None]
  - URINARY INCONTINENCE [None]
